FAERS Safety Report 20050618 (Version 1)
Quarter: 2021Q4

REPORT INFORMATION
  Report Type: Spontaneous
  Country: CN (occurrence: CN)
  Receive Date: 20211109
  Receipt Date: 20211109
  Transmission Date: 20220303
  Serious: Yes (Other)
  Sender: FDA-Public Use
  Company Number: CN-SUN PHARMACEUTICAL INDUSTRIES LTD-2021R1-316714

PATIENT
  Age: 61 Year
  Sex: Male

DRUGS (6)
  1. EBASTINE [Suspect]
     Active Substance: EBASTINE
     Indication: Rash
     Dosage: UNK
     Route: 065
     Dates: start: 20190201
  2. EBASTINE [Suspect]
     Active Substance: EBASTINE
     Indication: Pruritus
  3. LORATADINE [Suspect]
     Active Substance: LORATADINE
     Indication: Rash
     Dosage: UNK
     Route: 065
     Dates: start: 20190201
  4. LORATADINE [Suspect]
     Active Substance: LORATADINE
     Indication: Pruritus
  5. MOMETASONE [Suspect]
     Active Substance: MOMETASONE
     Indication: Rash
     Dosage: UNK
     Route: 065
     Dates: start: 20190201
  6. MOMETASONE [Suspect]
     Active Substance: MOMETASONE
     Indication: Pruritus

REACTIONS (1)
  - Disease progression [Unknown]
